FAERS Safety Report 10777068 (Version 1)
Quarter: 2015Q1

REPORT INFORMATION
  Report Type: Spontaneous
  Country: US (occurrence: None)
  Receive Date: 20150206
  Receipt Date: 20150206
  Transmission Date: 20150721
  Serious: Yes (Hospitalization)
  Sender: FDA-Public Use
  Company Number: None

PATIENT
  Age: 59 Year
  Sex: Male

DRUGS (1)
  1. AMPYRA [Suspect]
     Active Substance: DALFAMPRIDINE
     Indication: MULTIPLE SCLEROSIS
     Dates: start: 20150129, end: 20150201

REACTIONS (4)
  - Fall [None]
  - Generalised tonic-clonic seizure [None]
  - Head injury [None]
  - Confusional state [None]

NARRATIVE: CASE EVENT DATE: 20150201
